FAERS Safety Report 6850832-5 (Version None)
Quarter: 2010Q3

REPORT INFORMATION
  Report Type: 
  Country: None (occurrence: None)
  Receive Date: 20100716
  Receipt Date: 20071022
  Transmission Date: 20110219
  Serious: No
  Sender: FDA-Public Use
  Company Number: US-PFIZER INC-2007090371

PATIENT
  Sex: Male
  Weight: 66.7 kg

DRUGS (1)
  1. CHANTIX [Suspect]
     Indication: SMOKING CESSATION THERAPY
     Dates: start: 20071011

REACTIONS (4)
  - ABDOMINAL DISCOMFORT [None]
  - ANXIETY [None]
  - INSOMNIA [None]
  - LOGORRHOEA [None]
